FAERS Safety Report 17310540 (Version 1)
Quarter: 2020Q1

REPORT INFORMATION
  Report Type: Spontaneous
  Country: US (occurrence: US)
  Receive Date: 20200123
  Receipt Date: 20200123
  Transmission Date: 20200409
  Serious: Yes (Other)
  Sender: FDA-Public Use
  Company Number: US-ROCHE-2430593

PATIENT
  Age: 56 Year
  Sex: Female
  Weight: 69.92 kg

DRUGS (2)
  1. RITUXAN [Suspect]
     Active Substance: RITUXIMAB
     Indication: NON-HODGKIN^S LYMPHOMA
     Dosage: ONE DOSE WAS GIVEN OVER TWO DAYS 1ST HALF DOSE
     Route: 042
     Dates: start: 20190922
  2. RITUXAN [Suspect]
     Active Substance: RITUXIMAB
     Dosage: ONE DOSE WAS GIVEN OVER TWO DAYS 2ND HALF DOSE
     Route: 042
     Dates: start: 20190923

REACTIONS (3)
  - Platelet count decreased [Unknown]
  - Neutrophil count decreased [Unknown]
  - Alopecia [Unknown]

NARRATIVE: CASE EVENT DATE: 20190927
